FAERS Safety Report 7090811-9 (Version None)
Quarter: 2010Q4

REPORT INFORMATION
  Report Type: 
  Country: None (occurrence: None)
  Receive Date: 20101109
  Receipt Date: 20101103
  Transmission Date: 20110411
  Serious: Yes (Hospitalization)
  Sender: FDA-Public Use
  Company Number: US-AMGEN-USASP2010003283

PATIENT

DRUGS (1)
  1. ENBREL [Suspect]
     Indication: RHEUMATOID ARTHRITIS
     Dates: start: 20070701

REACTIONS (6)
  - COLITIS [None]
  - NEPHROLITHIASIS [None]
  - ORAL PRURITUS [None]
  - PRURITUS [None]
  - SMEAR CERVIX ABNORMAL [None]
  - VOMITING [None]
